FAERS Safety Report 8580904-9 (Version None)
Quarter: 2012Q3

REPORT INFORMATION
  Report Type: 
  Country: None (occurrence: None)
  Receive Date: 20120726
  Receipt Date: 20120711
  Transmission Date: 20120928
  Serious: Yes (Other)
  Sender: FDA-Public Use
  Company Number: FK201201978

PATIENT
  Age: 67 Year
  Sex: Male

DRUGS (2)
  1. VANCOMYCIN [Suspect]
     Indication: STAPHYLOCOCCAL INFECTION
     Dosage: 750 MG, TOTAL DOSE: 9.25G
  2. VANCOMYCIN [Suspect]
     Indication: DIABETIC FOOT
     Dosage: 750 MG, TOTAL DOSE: 9.25G

REACTIONS (1)
  - NEUTROPENIA [None]
